FAERS Safety Report 6162613-9 (Version None)
Quarter: 2009Q2

REPORT INFORMATION
  Report Type: 
  Country: None (occurrence: None)
  Receive Date: 20090421
  Receipt Date: 20090417
  Transmission Date: 20091009
  Serious: Yes (Other)
  Sender: FDA-Public Use
  Company Number: US-AMGEN-US229852

PATIENT
  Sex: Male
  Weight: 84.4 kg

DRUGS (3)
  1. PROCRIT [Suspect]
     Indication: HIV INFECTION
     Route: 058
     Dates: start: 20060601, end: 20070501
  2. INTERFERON [Concomitant]
     Dates: start: 20060601, end: 20061001
  3. RIBAVIRIN [Concomitant]
     Dates: start: 20060601, end: 20061001

REACTIONS (3)
  - ANTI-ERYTHROPOIETIN ANTIBODY POSITIVE [None]
  - APLASIA PURE RED CELL [None]
  - NEUTRALISING ANTIBODIES POSITIVE [None]
